FAERS Safety Report 9147428 (Version 1)
Quarter: 2013Q1

REPORT INFORMATION
  Report Type: Spontaneous
  Country: US (occurrence: US)
  Receive Date: 20130307
  Receipt Date: 20130307
  Transmission Date: 20140127
  Serious: Yes (Hospitalization, Other)
  Sender: FDA-Public Use
  Company Number: US-009507513-1303USA001878

PATIENT
  Age: 80 Year
  Sex: Male

DRUGS (9)
  1. SINGULAIR [Suspect]
     Route: 048
  2. MYSOLINE [Concomitant]
     Route: 048
  3. SYMBICORT [Concomitant]
     Dosage: INHALATION
     Route: 055
  4. NEXIUM [Concomitant]
     Indication: CONVULSION
  5. CALCIPARINE [Concomitant]
     Indication: ESSENTIAL TREMOR
  6. CORDARONE [Concomitant]
  7. EUPRESSYL [Concomitant]
  8. LOXEN [Concomitant]
  9. PIPRAM [Concomitant]

REACTIONS (4)
  - Convulsion [Unknown]
  - Persecutory delusion [Unknown]
  - Therapy cessation [Unknown]
  - Agitation [Unknown]
